FAERS Safety Report 5293375-5 (Version None)
Quarter: 2007Q2

REPORT INFORMATION
  Report Type: 
  Country: None (occurrence: None)
  Receive Date: 20070411
  Receipt Date: 20070405
  Transmission Date: 20071010
  Serious: Yes (Hospitalization)
  Sender: FDA-Public Use
  Company Number: US-JNJFOC-20070401775

PATIENT
  Sex: Female
  Weight: 68.04 kg

DRUGS (9)
  1. DURAGESIC-100 [Suspect]
     Indication: INTERVERTEBRAL DISC DEGENERATION
     Route: 062
  2. COMBIVENT [Concomitant]
     Indication: SARCOIDOSIS
     Route: 055
  3. ALDACTONE [Concomitant]
     Route: 048
  4. AMBIEN CR [Concomitant]
     Indication: SLEEP DISORDER
     Route: 048
  5. KEPPRA [Concomitant]
     Indication: CONVULSION
     Route: 048
  6. HUMULIN 70/30 [Concomitant]
     Indication: DIABETES MELLITUS
     Route: 058
  7. CLONAZEPAM [Concomitant]
     Indication: RESTLESS LEGS SYNDROME
     Route: 048
  8. PREDNISONE TAB [Concomitant]
     Route: 048
  9. SENTORA [Concomitant]
     Indication: BREAKTHROUGH PAIN
     Route: 048

REACTIONS (4)
  - DIABETIC COMA [None]
  - INADEQUATE ANALGESIA [None]
  - PNEUMONIA [None]
  - SARCOIDOSIS [None]
